FAERS Safety Report 8018240-1 (Version None)
Quarter: 2011Q4

REPORT INFORMATION
  Report Type: 
  Country: None (occurrence: None)
  Receive Date: 20111227
  Receipt Date: 20111216
  Transmission Date: 20120403
  Serious: Yes (Hospitalization, Other)
  Sender: FDA-Public Use
  Company Number: 2011SGN00366

PATIENT
  Age: 50 Year
  Sex: Male

DRUGS (1)
  1. ADCETRIS [Suspect]
     Indication: HODGKIN'S DISEASE
     Dosage: 1.8 MG/KG, Q21D, INTRAVENOUS; 1.2 MG/KG, Q21D
     Route: 042
     Dates: start: 20110523, end: 20110815

REACTIONS (29)
  - PROGRESSIVE MULTIFOCAL LEUKOENCEPHALOPATHY [None]
  - DYSGRAPHIA [None]
  - MOTOR DYSFUNCTION [None]
  - CONFUSIONAL STATE [None]
  - CENTRAL NERVOUS SYSTEM LESION [None]
  - NEUROPATHY PERIPHERAL [None]
  - INTERVERTEBRAL DISC DEGENERATION [None]
  - HYPOREFLEXIA [None]
  - BALANCE DISORDER [None]
  - ACTIVITIES OF DAILY LIVING IMPAIRED [None]
  - AREFLEXIA [None]
  - DYSURIA [None]
  - LYMPHOPENIA [None]
  - CENTRAL NERVOUS SYSTEM LYMPHOMA [None]
  - TUMOUR NECROSIS [None]
  - COORDINATION ABNORMAL [None]
  - JC VIRUS INFECTION [None]
  - HYPOAESTHESIA [None]
  - MUSCULAR WEAKNESS [None]
  - VIBRATION TEST ABNORMAL [None]
  - FATIGUE [None]
  - SPEECH DISORDER [None]
  - HEMIPARESIS [None]
  - BACK PAIN [None]
  - DIZZINESS [None]
  - SENSORY DISTURBANCE [None]
  - FALL [None]
  - TREMOR [None]
  - BONE DISORDER [None]
